FAERS Safety Report 20182369 (Version 1)
Quarter: 2021Q4

REPORT INFORMATION
  Report Type: Spontaneous
  Country: US (occurrence: US)
  Receive Date: 20211214
  Receipt Date: 20211214
  Transmission Date: 20220303
  Serious: Yes (Hospitalization, Other)
  Sender: FDA-Public Use
  Company Number: US-MYLANLABS-2021M1092584

PATIENT
  Age: 25 Year
  Sex: Male

DRUGS (7)
  1. SERTRALINE [Suspect]
     Active Substance: SERTRALINE HYDROCHLORIDE
     Indication: Generalised anxiety disorder
     Dosage: UNK
     Route: 065
     Dates: start: 202003
  2. BUSPIRONE [Suspect]
     Active Substance: BUSPIRONE HYDROCHLORIDE
     Indication: Generalised anxiety disorder
     Dosage: UNK
     Route: 065
  3. VALPROIC ACID [Suspect]
     Active Substance: VALPROIC ACID
     Indication: Intermittent explosive disorder
     Dosage: 250 MILLIGRAM, BID, INITIAL DOSAGE NOT STATED; VALPROIC ACID DOSES GREATER THAN 250MG TWICE DAILY
     Route: 065
     Dates: start: 2020, end: 202101
  4. OLANZAPINE [Suspect]
     Active Substance: OLANZAPINE
     Indication: Generalised anxiety disorder
     Dosage: 5MG NIGHTLY
     Route: 065
     Dates: start: 2020
  5. CLONAZEPAM [Suspect]
     Active Substance: CLONAZEPAM
     Indication: Generalised anxiety disorder
     Dosage: 0.25 MILLIGRAM, QD
     Route: 065
     Dates: start: 2020
  6. ARIPIPRAZOLE [Suspect]
     Active Substance: ARIPIPRAZOLE
     Indication: Generalised anxiety disorder
     Dosage: UNK
     Route: 065
  7. RISPERIDONE [Concomitant]
     Active Substance: RISPERIDONE
     Indication: Intermittent explosive disorder
     Dosage: 1MG NIGHTLY
     Route: 065
     Dates: start: 2020

REACTIONS (6)
  - Disinhibition [Unknown]
  - Parotid gland enlargement [Recovering/Resolving]
  - Lethargy [Unknown]
  - Tremor [Unknown]
  - Nausea [Unknown]
  - Off label use [Unknown]

NARRATIVE: CASE EVENT DATE: 20200101
